FAERS Safety Report 14054994 (Version 1)
Quarter: 2017Q4

REPORT INFORMATION
  Report Type: Spontaneous
  Country: US (occurrence: US)
  Receive Date: 20171006
  Receipt Date: 20171006
  Transmission Date: 20180321
  Serious: No
  Sender: FDA-Public Use
  Company Number: US-JNJFOC-20170713460

PATIENT
  Age: 69 Year
  Sex: Male
  Weight: 82.1 kg

DRUGS (4)
  1. LISINOPRIL. [Concomitant]
     Active Substance: LISINOPRIL
     Indication: HYPERTENSION
     Dosage: 20 YEARS
     Route: 065
  2. MENS ROGAINE EXTRA STRENGTH [Suspect]
     Active Substance: MINOXIDIL
     Indication: ALOPECIA
     Dosage: 1/2 CAP
     Route: 061
  3. MENS ROGAINE EXTRA STRENGTH [Suspect]
     Active Substance: MINOXIDIL
     Route: 061
  4. FELODIPINE. [Concomitant]
     Active Substance: FELODIPINE
     Indication: HYPERTENSION
     Dosage: 20 YEARS
     Route: 065

REACTIONS (6)
  - Product use in unapproved indication [Recovered/Resolved]
  - Dry skin [Recovered/Resolved]
  - Hair disorder [Recovered/Resolved]
  - Drug administered at inappropriate site [Recovered/Resolved]
  - Hair texture abnormal [Recovered/Resolved]
  - Alopecia [Not Recovered/Not Resolved]
